FAERS Safety Report 21381786 (Version 2)
Quarter: 2022Q4

REPORT INFORMATION
  Report Type: Spontaneous
  Country: JP (occurrence: JP)
  Receive Date: 20220927
  Receipt Date: 20221012
  Transmission Date: 20230113
  Serious: Yes (Hospitalization)
  Sender: FDA-Public Use
  Company Number: JP-TEVA-2022-JP-2077160

PATIENT
  Age: 29 Year
  Sex: Male

DRUGS (4)
  1. AMOXICILLIN [Suspect]
     Active Substance: AMOXICILLIN
     Indication: Primary syphilis
     Dosage: 1500 MILLIGRAM DAILY; 1500 MG/DAY (DIVIDED INTO THREE DOSES)
     Route: 065
  2. FAVIPIRAVIR [Concomitant]
     Active Substance: FAVIPIRAVIR
     Indication: COVID-19
     Dosage: 3600 MILLIGRAM DAILY; 1800 MG EVERY 12 HOURS ON THE 1ST DAY
     Route: 065
  3. FAVIPIRAVIR [Concomitant]
     Active Substance: FAVIPIRAVIR
     Dosage: 1600 MILLIGRAM DAILY; 800 MG EVERY 12 HOURS ON THE 2ND TO 14TH DAYS
     Route: 065
  4. CICLESONIDE [Concomitant]
     Active Substance: CICLESONIDE
     Indication: COVID-19
     Dosage: 400 MICROGRAM DAILY; 200 MICROG OF INHALED CICLESONIDE 2 INHALATIONS, TWICE DAILY
     Route: 065

REACTIONS (1)
  - Jarisch-Herxheimer reaction [Recovered/Resolved]
